FAERS Safety Report 18524951 (Version 3)
Quarter: 2021Q1

REPORT INFORMATION
  Report Type: Spontaneous
  Country: JP (occurrence: JP)
  Receive Date: 20201119
  Receipt Date: 20210108
  Transmission Date: 20210419
  Serious: Yes (Death, Other)
  Sender: FDA-Public Use
  Company Number: JP-009507513-2011JPN011181

PATIENT
  Age: 77 Year
  Sex: Female

DRUGS (6)
  1. LASIX [Concomitant]
     Active Substance: FUROSEMIDE
     Route: 048
  2. ALDACTONE A [Concomitant]
     Active Substance: SPIRONOLACTONE
     Route: 048
  3. DEPAS [Concomitant]
     Route: 048
  4. IRTRA [Concomitant]
     Active Substance: IRBESARTAN\TRICHLORMETHIAZIDE
     Route: 048
  5. LIVACT [Concomitant]
     Active Substance: AMINO ACIDS, SOURCE UNSPECIFIED
     Dosage: DOSAGE FORM: GRAIN
     Route: 048
  6. GLACTIV [Suspect]
     Active Substance: SITAGLIPTIN
     Indication: TYPE 2 DIABETES MELLITUS
     Dosage: 25 MG, EVERYDAY
     Route: 048
     Dates: start: 20110315, end: 20190219

REACTIONS (6)
  - Death [Fatal]
  - Hepatic encephalopathy [Unknown]
  - Lactic acidosis [Unknown]
  - Pemphigoid [Unknown]
  - Oropharyngeal pain [Unknown]
  - Inflammation [Unknown]
